FAERS Safety Report 9165816 (Version 1)
Quarter: 2013Q1

REPORT INFORMATION
  Report Type: Spontaneous
  Country: US (occurrence: None)
  Receive Date: 20130228
  Receipt Date: 20130228
  Transmission Date: 20140127
  Serious: Yes (Other)
  Sender: FDA-Public Use
  Company Number: DIAS - RR7ML - 38427

PATIENT
  Sex: Female

DRUGS (1)
  1. RESCUE SLEEP [Suspect]
     Dosage: 2 SPRAYS ONTO THE TOUGUE
     Dates: start: 201302, end: 20130207

REACTIONS (1)
  - Convulsion [None]
